FAERS Safety Report 23075333 (Version 4)
Quarter: 2023Q4

REPORT INFORMATION
  Report Type: Spontaneous
  Country: US (occurrence: US)
  Receive Date: 20231017
  Receipt Date: 20231228
  Transmission Date: 20240110
  Serious: No
  Sender: FDA-Public Use
  Company Number: US-SA-SAC20231016000316

PATIENT
  Age: 5 Year
  Sex: Male

DRUGS (3)
  1. ALPROLIX [Suspect]
     Active Substance: EFTRENONACOG ALFA
     Indication: Factor IX deficiency
     Dosage: 2340 U, BIW
     Route: 042
     Dates: start: 202303
  2. ALPROLIX [Suspect]
     Active Substance: EFTRENONACOG ALFA
     Indication: Factor IX deficiency
     Dosage: 2340 U, BIW
     Route: 042
     Dates: start: 202303
  3. HEPARIN [Concomitant]
     Active Substance: HEPARIN SODIUM

REACTIONS (6)
  - Pyrexia [Unknown]
  - Poor venous access [Unknown]
  - Traumatic haemorrhage [Recovered/Resolved]
  - Pharyngitis streptococcal [Unknown]
  - Respiratory syncytial virus infection [Unknown]
  - Pyrexia [Unknown]

NARRATIVE: CASE EVENT DATE: 20230101
